FAERS Safety Report 9479086 (Version 1)
Quarter: 2013Q3

REPORT INFORMATION
  Report Type: Spontaneous
  Country: US (occurrence: US)
  Receive Date: 20130827
  Receipt Date: 20130827
  Transmission Date: 20140515
  Serious: Yes (Death, Hospitalization)
  Sender: FDA-Public Use
  Company Number: US-GLAXOSMITHKLINE-A1038960A

PATIENT
  Age: 50 Year
  Sex: Male

DRUGS (3)
  1. LOVAZA [Suspect]
     Indication: BLOOD CHOLESTEROL INCREASED
     Route: 065
  2. PAXIL [Concomitant]
  3. METOPROLOL [Concomitant]

REACTIONS (2)
  - Death [Fatal]
  - Gastric cancer stage IV [Unknown]
